FAERS Safety Report 10527116 (Version 1)
Quarter: 2014Q4

REPORT INFORMATION
  Report Type: Spontaneous
  Country: US (occurrence: US)
  Receive Date: 20141020
  Receipt Date: 20141020
  Transmission Date: 20150528
  Serious: No
  Sender: FDA-Public Use
  Company Number: US-AMGEN INC.-USASP2014078279

PATIENT
  Age: 55 Year
  Sex: Male

DRUGS (1)
  1. ENBREL [Suspect]
     Active Substance: ETANERCEPT
     Indication: PSORIATIC ARTHROPATHY
     Dosage: 50 MG, EVERY 13 DAYS
     Route: 065

REACTIONS (16)
  - Influenza like illness [Unknown]
  - Nasal congestion [Unknown]
  - Paranasal sinus discomfort [Unknown]
  - Skin irritation [Unknown]
  - Skin disorder [Unknown]
  - Rhinorrhoea [Unknown]
  - Skin haemorrhage [Unknown]
  - Inflammation [Unknown]
  - Drug ineffective [Unknown]
  - Rash [Unknown]
  - Allergy to animal [Unknown]
  - Acne [Unknown]
  - Fungal skin infection [Unknown]
  - Hypersensitivity [Unknown]
  - Allergic sinusitis [Unknown]
  - Pain [Unknown]
